FAERS Safety Report 8492445-8 (Version None)
Quarter: 2012Q3

REPORT INFORMATION
  Report Type: 
  Country: None (occurrence: None)
  Receive Date: 20120706
  Receipt Date: 20120629
  Transmission Date: 20120928
  Serious: Yes (Other)
  Sender: FDA-Public Use
  Company Number: US-PFIZER INC-2011286735

PATIENT
  Sex: Female
  Weight: 44.444 kg

DRUGS (8)
  1. LYRICA [Suspect]
     Dosage: 50 MG, 4X/DAY
     Route: 048
     Dates: start: 20120614
  2. METAXALONE [Concomitant]
     Indication: INTERVERTEBRAL DISC DEGENERATION
     Dosage: UNK
  3. LYRICA [Suspect]
     Indication: NEURALGIA
     Dosage: 50 MG, 1X/DAY
  4. TRAZODONE [Concomitant]
     Indication: SLEEP DISORDER
     Dosage: UNK
  5. OXYCODONE [Concomitant]
     Indication: NEURALGIA
     Dosage: UNK
  6. SOMA [Concomitant]
     Indication: MUSCLE SPASMS
     Dosage: UNK
  7. LYRICA [Suspect]
     Indication: SPONDYLITIS
     Dosage: 50 MG, 3X/DAY
     Route: 048
     Dates: start: 20120401, end: 20120613
  8. CLONAZEPAM [Concomitant]
     Indication: CONVULSION
     Dosage: UNK

REACTIONS (7)
  - SPONDYLOLYSIS [None]
  - DRUG INEFFECTIVE [None]
  - SCOLIOSIS [None]
  - ASTIGMATISM [None]
  - VISUAL IMPAIRMENT [None]
  - NEURALGIA [None]
  - WEIGHT INCREASED [None]
